FAERS Safety Report 8379424-6 (Version None)
Quarter: 2012Q2

REPORT INFORMATION
  Report Type: 
  Country: None (occurrence: None)
  Receive Date: 20120523
  Receipt Date: 20120507
  Transmission Date: 20120825
  Serious: Yes (Other)
  Sender: FDA-Public Use
  Company Number: ES-JNJFOC-20101106946

PATIENT
  Sex: Female

DRUGS (20)
  1. REMICADE [Suspect]
     Route: 064
     Dates: start: 20100813
  2. REMICADE [Suspect]
     Route: 064
     Dates: start: 20101018
  3. REMICADE [Suspect]
     Route: 064
     Dates: start: 20100421
  4. REMICADE [Suspect]
     Route: 064
     Dates: start: 20100301
  5. REMICADE [Suspect]
     Route: 064
     Dates: start: 20100224
  6. REMICADE [Suspect]
     Route: 064
     Dates: start: 20100421
  7. REMICADE [Suspect]
     Route: 064
     Dates: start: 20100613
  8. REMICADE [Suspect]
     Route: 064
     Dates: start: 20100719
  9. REMICADE [Suspect]
     Route: 064
     Dates: start: 20100519
  10. REMICADE [Suspect]
     Route: 064
     Dates: start: 20100126
  11. REMICADE [Suspect]
     Route: 064
     Dates: start: 20100813
  12. REMICADE [Suspect]
     Indication: EXPOSURE DURING BREAST FEEDING
     Route: 064
     Dates: start: 20100920
  13. REMICADE [Suspect]
     Route: 064
     Dates: start: 20101018
  14. REMICADE [Suspect]
     Route: 064
     Dates: start: 20100920
  15. REMICADE [Suspect]
     Route: 064
     Dates: start: 20100301
  16. REMICADE [Suspect]
     Indication: FOETAL EXPOSURE DURING PREGNANCY
     Route: 064
     Dates: start: 20100613
  17. REMICADE [Suspect]
     Route: 064
     Dates: start: 20100719
  18. REMICADE [Suspect]
     Route: 064
     Dates: start: 20100126
  19. REMICADE [Suspect]
     Route: 064
     Dates: start: 20100519
  20. REMICADE [Suspect]
     Route: 064
     Dates: start: 20100224

REACTIONS (2)
  - LOW BIRTH WEIGHT BABY [None]
  - BREAST FEEDING [None]
